FAERS Safety Report 7247005-3 (Version None)
Quarter: 2011Q1

REPORT INFORMATION
  Report Type: 
  Country: None (occurrence: None)
  Receive Date: 20110127
  Receipt Date: 20110119
  Transmission Date: 20110831
  Serious: Yes (Other)
  Sender: FDA-Public Use
  Company Number: US-JNJFOC-20100807433

PATIENT
  Sex: Male

DRUGS (2)
  1. LEVAQUIN [Suspect]
     Indication: HIV TEST
     Route: 048
  2. PREDNISONE [Suspect]
     Indication: ASTHMA
     Route: 048

REACTIONS (4)
  - TENDON RUPTURE [None]
  - LIGAMENT RUPTURE [None]
  - BACK PAIN [None]
  - JOINT INJURY [None]
